FAERS Safety Report 22537233 (Version 1)
Quarter: 2023Q2

REPORT INFORMATION
  Report Type: Spontaneous
  Country: GB (occurrence: GB)
  Receive Date: 20230608
  Receipt Date: 20230608
  Transmission Date: 20230722
  Serious: Yes (Other)
  Sender: FDA-Public Use
  Company Number: None

PATIENT
  Age: 76 Year
  Sex: Female
  Weight: 78 kg

DRUGS (7)
  1. ALENDRONATE SODIUM [Suspect]
     Active Substance: ALENDRONATE SODIUM
     Indication: Ill-defined disorder
     Dosage: UNK
     Dates: start: 20220616
  2. ALENDRONATE SODIUM [Suspect]
     Active Substance: ALENDRONATE SODIUM
     Dosage: TAKE ONE TABLET A WEEK, SWALLOW WHOLE WITH PLEN...
     Dates: start: 20220426
  3. SIMVASTATIN [Concomitant]
     Active Substance: SIMVASTATIN
     Dosage: ONE TO BE TAKEN AT NIGHT
     Dates: start: 20211125
  4. CALCIUM CARBONATE\CHOLECALCIFEROL [Concomitant]
     Active Substance: CALCIUM CARBONATE\CHOLECALCIFEROL
     Dosage: CHEW ONE TABLET ONCE DAILY
     Dates: start: 20220426
  5. GLICLAZIDE [Concomitant]
     Active Substance: GLICLAZIDE
     Dosage: TAKE ONE TABLET DAILY WITH BREAKFAST
     Dates: start: 20220208
  6. OMEPRAZOLE [Concomitant]
     Active Substance: OMEPRAZOLE
     Dosage: TAKE ONE DAILY WHILE REMAIN ON STEROIDS
     Dates: start: 20220315
  7. PREDNISOLONE [Concomitant]
     Active Substance: PREDNISOLONE
     Dosage: THREE TO BE TAKEN ONCE DAILY FOR 3 WEEKS (TOTAL DOSE 8MG ONCE DAILY)
     Dates: start: 20220610

REACTIONS (2)
  - Peripheral swelling [Recovered/Resolved]
  - Swelling face [Recovered/Resolved]
